FAERS Safety Report 20866436 (Version 1)
Quarter: 2022Q2

REPORT INFORMATION
  Report Type: Spontaneous
  Country: US (occurrence: None)
  Receive Date: 20220523
  Receipt Date: 20220523
  Transmission Date: 20220720
  Serious: No
  Sender: FDA-Public Use
  Company Number: None

PATIENT
  Sex: Female

DRUGS (1)
  1. REMICADE [Suspect]
     Active Substance: INFLIXIMAB
     Indication: Rheumatoid arthritis
     Dosage: INFUSE 300MG INTRAVENOUSLY AT WEEKS 0, 2, AND 6, THEN EVERY 8 WEEKS?
     Route: 042
     Dates: start: 202204

REACTIONS (1)
  - Therapy non-responder [None]
